FAERS Safety Report 9233122 (Version 1)
Quarter: 2013Q2

REPORT INFORMATION
  Report Type: Spontaneous
  Country: US (occurrence: US)
  Receive Date: 20130416
  Receipt Date: 20130416
  Transmission Date: 20140414
  Serious: Yes (Other)
  Sender: FDA-Public Use
  Company Number: PHEH2013US008410

PATIENT
  Sex: Male
  Weight: 97.96 kg

DRUGS (24)
  1. GILENYA [Suspect]
     Indication: MULTIPLE SCLEROSIS
     Dosage: UNK UKN, UNK
     Route: 048
     Dates: start: 20110530
  2. TIAZAC [Concomitant]
     Route: 048
  3. DIAZEPAM [Concomitant]
     Dosage: UNK UKN, UNK
     Route: 048
     Dates: start: 20130301, end: 20130301
  4. METFORMIN [Concomitant]
     Route: 048
  5. FAMOTIDINE [Concomitant]
     Dosage: UNK UKN, UNK
     Dates: start: 20120529, end: 20121124
  6. FAMOTIDINE [Concomitant]
     Dosage: UNK UKN, UNK
     Dates: start: 20130301, end: 20130325
  7. DILTIAZEM [Concomitant]
     Dosage: UNK UKN, UNK
     Dates: start: 20120905, end: 20130125
  8. DILTIAZEM [Concomitant]
     Dosage: UNK UKN, UNK
     Dates: start: 20130325, end: 20130325
  9. HYDROCHLOROTHIAZIDE [Concomitant]
     Dosage: UNK
     Dates: start: 20120905, end: 20130125
  10. HYDROCHLOROTHIAZIDE [Concomitant]
     Dosage: UNK UKN, UNK
     Dates: start: 20130325, end: 20130325
  11. ISORBIDE [Concomitant]
     Dosage: 60 MG, DAILY
     Dates: start: 20120905, end: 20130301
  12. ISORBIDE [Concomitant]
     Dosage: 60 MG, DAILY
     Dates: start: 20130325, end: 20130325
  13. METOPROLOL [Concomitant]
     Dosage: UNK UKN, UNK
     Dates: start: 20120905, end: 20130325
  14. COMBIVENT [Concomitant]
     Dosage: UNK
     Dates: start: 20120221, end: 20130125
  15. COMBIVENT [Concomitant]
     Dosage: UNK UKN, UNK
     Dates: start: 20130301, end: 20130325
  16. HIDROCODONA/ACETAMINOFEN MALLINCKRODT [Concomitant]
     Dosage: UNK
     Dates: start: 20121003, end: 20121003
  17. HIDROCODONA/ACETAMINOFEN MALLINCKRODT [Concomitant]
     Dosage: UNK UKN, UNK
     Dates: start: 20130125, end: 20130208
  18. CEPHALEXIN [Concomitant]
  19. COPAXONE [Concomitant]
  20. AZITHROMYCIN [Concomitant]
  21. LEVOFLOXACIN [Concomitant]
  22. NIASPAN ER [Concomitant]
  23. PRAVASTATIN SODIUM [Concomitant]
  24. VENTOLIN                           /00942701/ [Concomitant]

REACTIONS (1)
  - Diabetes mellitus [Not Recovered/Not Resolved]
